FAERS Safety Report 5579583-4 (Version None)
Quarter: 2007Q4

REPORT INFORMATION
  Report Type: 
  Country: None (occurrence: None)
  Receive Date: 20071130
  Receipt Date: 20070814
  Transmission Date: 20080405
  Serious: No
  Sender: FDA-Public Use
  Company Number: US200707002071

PATIENT
  Age: 59 Year
  Sex: Male
  Weight: 104.4 kg

DRUGS (14)
  1. BYETTA [Suspect]
     Indication: FACTOR II MUTATION
     Dosage: 5 UG, 2/D, SUBCUTANEOUS
     Route: 058
     Dates: end: 20070706
  2. COUMADIN [Concomitant]
  3. AVANDIA [Concomitant]
  4. NITROGLYCERIN [Concomitant]
  5. MULTIVITAMIN [Concomitant]
  6. DIPYRIDAMOLE [Concomitant]
  7. METOPROLOL TARTRATE [Concomitant]
  8. VYTORIN [Concomitant]
  9. DILTIAZEM [Concomitant]
  10. ASPIRIN [Concomitant]
  11. NPH PURIFIED PORK ISOPHANE INSULIN [Concomitant]
  12. ZETIA [Concomitant]
  13. COMBIVENT (IPRATROPIUM BROMIDE, SALBUTAMOL) [Concomitant]
  14. LASIX [Concomitant]

REACTIONS (4)
  - ABDOMINAL PAIN [None]
  - DIARRHOEA HAEMORRHAGIC [None]
  - INTERNATIONAL NORMALISED RATIO INCREASED [None]
  - SINUSITIS [None]
